FAERS Safety Report 18308014 (Version 2)
Quarter: 2020Q4

REPORT INFORMATION
  Report Type: Spontaneous
  Country: US (occurrence: US)
  Receive Date: 20200924
  Receipt Date: 20201019
  Transmission Date: 20210113
  Serious: Yes (Other)
  Sender: FDA-Public Use
  Company Number: US-009507513-2009USA008978

PATIENT
  Age: 67 Year
  Sex: Female

DRUGS (1)
  1. KEYTRUDA [Suspect]
     Active Substance: PEMBROLIZUMAB
     Indication: NON-SMALL CELL LUNG CANCER
     Dosage: EVERY THREE WEEKS, BUT THEN SWTCHET TO EVERY 6 WEEKS
     Dates: start: 201801

REACTIONS (4)
  - Hair texture abnormal [Unknown]
  - Blood calcium increased [Unknown]
  - Hiatus hernia [Unknown]
  - Pericardial fibrosis [Unknown]

NARRATIVE: CASE EVENT DATE: 201807
